FAERS Safety Report 4957399-7 (Version None)
Quarter: 2006Q1

REPORT INFORMATION
  Report Type: 
  Country: None (occurrence: None)
  Receive Date: 20060327
  Receipt Date: 20060317
  Transmission Date: 20060701
  Serious: Yes (Death)
  Sender: FDA-Public Use
  Company Number: PERC20060006

PATIENT
  Age: 29 Year
  Sex: Male
  Weight: 73.4827 kg

DRUGS (6)
  1. PERCOCET [Suspect]
     Indication: BACK PAIN
     Dosage: PO
     Route: 048
     Dates: start: 20041201, end: 20041201
  2. ABILIFY [Suspect]
     Indication: BIPOLAR DISORDER
     Dosage: 15 MG DAILY PO
     Route: 048
  3. REMERON [Suspect]
     Indication: BIPOLAR DISORDER
     Dosage: 30 MG QHS PO
     Route: 048
  4. NEURONTIN [Concomitant]
  5. CLONAZEPAM [Concomitant]
  6. NAPROXEN [Concomitant]

REACTIONS (21)
  - ACCIDENTAL DEATH [None]
  - AORTIC ARTERIOSCLEROSIS [None]
  - ARTERIOSCLEROSIS CORONARY ARTERY [None]
  - BACK INJURY [None]
  - BACK PAIN [None]
  - BENIGN PROSTATIC HYPERPLASIA [None]
  - BRAIN OEDEMA [None]
  - CALCULUS URINARY [None]
  - DRUG INTERACTION [None]
  - DRUG SCREEN POSITIVE [None]
  - DRUG TOXICITY [None]
  - FALL [None]
  - GLOMERULOSCLEROSIS [None]
  - HEPATIC STEATOSIS [None]
  - NEOPLASM PROSTATE [None]
  - NEPHROLITHIASIS [None]
  - OVERDOSE [None]
  - PANCREATIC NECROSIS [None]
  - PULMONARY OEDEMA [None]
  - RENAL ARTERIOSCLEROSIS [None]
  - THERMAL BURN [None]
